FAERS Safety Report 19056609 (Version 1)
Quarter: 2021Q1

REPORT INFORMATION
  Report Type: Report from Study
  Country: NL (occurrence: NL)
  Receive Date: 20210325
  Receipt Date: 20210325
  Transmission Date: 20210420
  Serious: Yes (Other)
  Sender: FDA-Public Use
  Company Number: NL-PFIZER INC-2021291280

PATIENT
  Age: 55 Year
  Sex: Male

DRUGS (1)
  1. CYTARABINE. [Suspect]
     Active Substance: CYTARABINE
     Indication: NON-HODGKIN^S LYMPHOMA
     Dosage: 1 G/M2, TWICE DAILY FOR 4?6 DAYS

REACTIONS (3)
  - Small intestinal obstruction [Recovered/Resolved]
  - Gastrointestinal wall thickening [Recovered/Resolved]
  - Mechanical ileus [Recovered/Resolved]
